FAERS Safety Report 12675575 (Version 1)
Quarter: 2016Q3

REPORT INFORMATION
  Report Type: Spontaneous
  Country: US (occurrence: US)
  Receive Date: 20160823
  Receipt Date: 20160823
  Transmission Date: 20161109
  Serious: No
  Sender: FDA-Public Use
  Company Number: US-BAYER-2016-155748

PATIENT
  Age: 80 Year
  Sex: Male
  Weight: 73.92 kg

DRUGS (1)
  1. MIRALAX [Suspect]
     Active Substance: POLYETHYLENE GLYCOL 3350

REACTIONS (4)
  - Skin exfoliation [Recovered/Resolved]
  - Product use issue [None]
  - Accidental exposure to product [None]
  - Eye irritation [Recovered/Resolved]

NARRATIVE: CASE EVENT DATE: 2016
